FAERS Safety Report 6818228-X (Version None)
Quarter: 2010Q3

REPORT INFORMATION
  Report Type: 
  Country: None (occurrence: None)
  Receive Date: 20100706
  Receipt Date: 20070323
  Transmission Date: 20110219
  Serious: No
  Sender: FDA-Public Use
  Company Number: US-PFIZER INC-2007023552

PATIENT
  Sex: Female
  Weight: 53.98 kg

DRUGS (8)
  1. ZITHROMAX [Suspect]
     Indication: BACTERIAL INFECTION
     Dates: start: 20070322
  2. ZANTAC [Concomitant]
  3. MULTI-VITAMINS [Concomitant]
  4. VITAMIN E [Concomitant]
  5. NIACIN [Concomitant]
  6. PARSLEY [Concomitant]
  7. GARLIC [Concomitant]
  8. SELENIUM [Concomitant]

REACTIONS (3)
  - ABDOMINAL PAIN UPPER [None]
  - IMMOBILE [None]
  - UNEVALUABLE EVENT [None]
